FAERS Safety Report 9086491 (Version 1)
Quarter: 2013Q1

REPORT INFORMATION
  Report Type: Report from Study
  Country: US (occurrence: US)
  Receive Date: 20130130
  Receipt Date: 20130130
  Transmission Date: 20140127
  Serious: No
  Sender: FDA-Public Use
  Company Number: US-ABBOTT-12P-163-0989111-00

PATIENT
  Age: 47 Year
  Sex: Female

DRUGS (2)
  1. HUMIRA [Suspect]
     Indication: RHEUMATOID ARTHRITIS
     Dates: start: 20120709
  2. SULFASALAZINE [Concomitant]
     Indication: COLITIS ULCERATIVE
     Dosage: 2 TABLETS THREE TIMES DAILY

REACTIONS (2)
  - Headache [Recovered/Resolved]
  - Sinusitis [Not Recovered/Not Resolved]
